FAERS Safety Report 10676101 (Version 1)
Quarter: 2014Q4

REPORT INFORMATION
  Report Type: Spontaneous
  Country: JP (occurrence: JP)
  Receive Date: 20141226
  Receipt Date: 20141226
  Transmission Date: 20150529
  Serious: Yes (Other)
  Sender: FDA-Public Use
  Company Number: JP-CIPLA LTD.-2014JP02736

PATIENT

DRUGS (2)
  1. GEMCITABINE [Suspect]
     Active Substance: GEMCITABINE\GEMCITABINE HYDROCHLORIDE
     Indication: ADENOCARCINOMA PANCREAS
     Dosage: 400 MG/M2 (LEVEL 4 OR PHASE II), OVER 30 MIN AT DAYS 1 AND 8
  2. RADIOTHERAPY [Suspect]
     Active Substance: RADIATION THERAPY
     Indication: ADENOCARCINOMA PANCREAS
     Dosage: 30 GY (20 FRACTIONS/14 DAYS)

REACTIONS (1)
  - Metastases to peritoneum [Unknown]
